FAERS Safety Report 21177036 (Version 1)
Quarter: 2022Q3

REPORT INFORMATION
  Report Type: Spontaneous
  Country: US (occurrence: US)
  Receive Date: 20220805
  Receipt Date: 20220805
  Transmission Date: 20221026
  Serious: No
  Sender: FDA-Public Use
  Company Number: US-PFIZER INC-202201037921

PATIENT

DRUGS (1)
  1. PAXLOVID [Suspect]
     Active Substance: NIRMATRELVIR\RITONAVIR
     Indication: COVID-19 treatment
     Dosage: 300

REACTIONS (5)
  - Urinary tract infection [Unknown]
  - Rash [Unknown]
  - Urticaria [Unknown]
  - Blister [Unknown]
  - Off label use [Unknown]
